FAERS Safety Report 17207143 (Version 1)
Quarter: 2019Q4

REPORT INFORMATION
  Report Type: Report from Study
  Country: CO (occurrence: CO)
  Receive Date: 20191227
  Receipt Date: 20191227
  Transmission Date: 20200122
  Serious: Yes (Death)
  Sender: FDA-Public Use
  Company Number: NVSC2019CO001951

PATIENT
  Age: 58 Year
  Sex: Female

DRUGS (1)
  1. TYKERB [Suspect]
     Active Substance: LAPATINIB DITOSYLATE
     Indication: BREAST CANCER
     Dosage: 1250 MG, QD
     Route: 048
     Dates: start: 20190814

REACTIONS (9)
  - Tracheal disorder [Unknown]
  - Dysphagia [Unknown]
  - Eating disorder [Unknown]
  - Dyspnoea [Unknown]
  - General physical health deterioration [Unknown]
  - Pain [Unknown]
  - Death [Fatal]
  - Neoplasm [Unknown]
  - Wound [Unknown]

NARRATIVE: CASE EVENT DATE: 20191204
